FAERS Safety Report 23630873 (Version 2)
Quarter: 2024Q3

REPORT INFORMATION
  Report Type: Spontaneous
  Country: DE (occurrence: DE)
  Receive Date: 20240314
  Receipt Date: 20240807
  Transmission Date: 20241017
  Serious: Yes (Congenital Anomaly, Other)
  Sender: AUROBINDO
  Company Number: DE-GILEAD-2024-0663263

PATIENT
  Age: 38 Week
  Sex: Male
  Weight: 2.9 kg

DRUGS (3)
  1. EMTRICITABINE\TENOFOVIR DISOPROXIL [Suspect]
     Active Substance: EMTRICITABINE\TENOFOVIR DISOPROXIL
     Indication: HIV infection
     Dosage: 445 MILLIGRAM, ONCE A DAY (445 MG, QD)
     Route: 064
     Dates: start: 20231114
  2. TENOFOVIR DISOPROXIL [Suspect]
     Active Substance: TENOFOVIR DISOPROXIL
     Indication: HIV infection
     Dosage: 445 MILLIGRAM, ONCE A DAY
     Route: 064
     Dates: start: 20231114
  3. TIVICAY [Suspect]
     Active Substance: DOLUTEGRAVIR SODIUM
     Indication: HIV infection
     Dosage: 50 MILLIGRAM, ONCE A DAY (50 MG, QD)
     Route: 064
     Dates: start: 20231114

REACTIONS (7)
  - Trisomy 21 [Unknown]
  - Macroglossia [Unknown]
  - Foot deformity [Unknown]
  - Abnormal palmar/plantar creases [Unknown]
  - Ultrasound antenatal screen abnormal [Unknown]
  - Prominent epicanthal folds [Unknown]
  - Foetal exposure during pregnancy [Recovered/Resolved]

NARRATIVE: CASE EVENT DATE: 20240219
